FAERS Safety Report 7707301-X (Version None)
Quarter: 2011Q3

REPORT INFORMATION
  Report Type: 
  Country: None (occurrence: None)
  Receive Date: 20110824
  Receipt Date: 20110819
  Transmission Date: 20111222
  Serious: Yes (Life-Threatening, Hospitalization)
  Sender: FDA-Public Use
  Company Number: PHEH1992US00006

PATIENT
  Age: 34 Year
  Sex: Female

DRUGS (2)
  1. METHERGINE [Suspect]
     Indication: UTERINE HAEMORRHAGE
     Dosage: 0.2 MG, UNK
     Route: 030
  2. DILTIAZEM [Concomitant]

REACTIONS (12)
  - ELECTROCARDIOGRAM ST SEGMENT ELEVATION [None]
  - VENTRICULAR HYPOKINESIA [None]
  - CHEST PAIN [None]
  - HYPOTENSION [None]
  - EJECTION FRACTION DECREASED [None]
  - DILATATION VENTRICULAR [None]
  - HAEMODYNAMIC INSTABILITY [None]
  - ARTERIOSPASM CORONARY [None]
  - VENTRICULAR EXTRASYSTOLES [None]
  - ACUTE MYOCARDIAL INFARCTION [None]
  - VENTRICULAR DYSKINESIA [None]
  - BLOOD CREATINE PHOSPHOKINASE INCREASED [None]
